FAERS Safety Report 8303680-3 (Version None)
Quarter: 2012Q2

REPORT INFORMATION
  Report Type: 
  Country: None (occurrence: None)
  Receive Date: 20120418
  Receipt Date: 20120402
  Transmission Date: 20120825
  Serious: Yes (Hospitalization)
  Sender: FDA-Public Use
  Company Number: DSA_55742_2012

PATIENT
  Age: 52 Year
  Sex: Male
  Weight: 91 kg

DRUGS (5)
  1. SITAGLIPTIN PHOSPHATE [Suspect]
     Indication: PRODUCT USED FOR UNKNOWN INDICATION
     Dosage: (100 MG QD ORAL)
     Route: 048
     Dates: start: 20111006, end: 20111101
  2. QVAR 40 [Concomitant]
  3. ENALAPRIL MALEATE [Suspect]
     Indication: PRODUCT USED FOR UNKNOWN INDICATION
     Dosage: (20 MG QD ORAL)
     Route: 048
     Dates: start: 20111006, end: 20111101
  4. METFORMIN HCL [Concomitant]
  5. IRBESARTAN [Concomitant]

REACTIONS (1)
  - LEUKOCYTOCLASTIC VASCULITIS [None]
